FAERS Safety Report 5606915-0 (Version None)
Quarter: 2008Q1

REPORT INFORMATION
  Report Type: 
  Country: None (occurrence: None)
  Receive Date: 20080129
  Receipt Date: 20080115
  Transmission Date: 20080703
  Serious: Yes (Death)
  Sender: FDA-Public Use
  Company Number: US-GILEAD-E2B_00000065

PATIENT

DRUGS (4)
  1. ADEFOVIR DIPIVOXIL KIT [Suspect]
     Indication: HEPATITIS B
     Dosage: 10MG PER DAY
     Route: 048
  2. LAMIVUDINE [Suspect]
     Indication: HEPATITIS B
     Route: 048
  3. H-BIG [Concomitant]
     Indication: ANTIVIRAL PROPHYLAXIS
     Route: 065
  4. CORTICOSTEROIDS [Concomitant]

REACTIONS (6)
  - DRUG INEFFECTIVE [None]
  - HBV DNA INCREASED [None]
  - HEPATIC FAILURE [None]
  - HEPATIC FUNCTION ABNORMAL [None]
  - HEPATITIS B [None]
  - TRANSAMINASES INCREASED [None]
